FAERS Safety Report 14095872 (Version 1)
Quarter: 2017Q4

REPORT INFORMATION
  Report Type: Spontaneous
  Country: US (occurrence: US)
  Receive Date: 20171016
  Receipt Date: 20171016
  Transmission Date: 20180321
  Serious: No
  Sender: FDA-Public Use
  Company Number: US-NOVOPROD-565013

PATIENT
  Age: 58 Year
  Sex: Female

DRUGS (3)
  1. TRESIBA [Suspect]
     Active Substance: INSULIN DEGLUDEC
     Indication: TYPE 1 DIABETES MELLITUS
     Dosage: 25 U, QD
     Route: 058
     Dates: start: 201706, end: 2017
  2. NOVOLOG [Suspect]
     Active Substance: INSULIN ASPART
     Indication: TYPE 1 DIABETES MELLITUS
     Dosage: SLIDING SCALE
     Route: 058
     Dates: start: 2016
  3. TRESIBA [Suspect]
     Active Substance: INSULIN DEGLUDEC
     Dosage: 15 U, QD
     Route: 058
     Dates: start: 2017

REACTIONS (2)
  - Blood glucose decreased [Recovered/Resolved]
  - Blood glucose increased [Not Recovered/Not Resolved]

NARRATIVE: CASE EVENT DATE: 201706
